FAERS Safety Report 13357254 (Version 2)
Quarter: 2017Q2

REPORT INFORMATION
  Report Type: Report from Study
  Country: None (occurrence: US)
  Receive Date: 20170322
  Receipt Date: 20170629
  Transmission Date: 20170830
  Serious: Yes (Other)
  Sender: FDA-Public Use
  Company Number: US-ABBVIE-17K-163-1913879-00

PATIENT
  Age: 66 Year
  Sex: Male

DRUGS (1)
  1. HUMIRA [Suspect]
     Active Substance: ADALIMUMAB
     Indication: COLITIS ULCERATIVE
     Route: 058
     Dates: start: 201303, end: 201510

REACTIONS (6)
  - Colitis ulcerative [Not Recovered/Not Resolved]
  - Thrombosis [Recovering/Resolving]
  - Incision site infection [Recovering/Resolving]
  - Tooth disorder [Not Recovered/Not Resolved]
  - Malignant melanoma [Recovered/Resolved]
  - Incision site haematoma [Recovered/Resolved]

NARRATIVE: CASE EVENT DATE: 201504
